FAERS Safety Report 11074769 (Version 2)
Quarter: 2015Q2

REPORT INFORMATION
  Report Type: Spontaneous
  Country: IE (occurrence: IE)
  Receive Date: 20150429
  Receipt Date: 20150505
  Transmission Date: 20150821
  Serious: No
  Sender: FDA-Public Use
  Company Number: IE-MALLINCKRODT-T201502213

PATIENT
  Sex: Female

DRUGS (2)
  1. ULTRA-TECHNEKOW FM [Suspect]
     Active Substance: TECHNETIUM TC-99M
     Indication: SCAN
     Dosage: UNK
     Route: 065
     Dates: start: 20150312, end: 20150312
  2. TECHNESCAN MAG3 [Suspect]
     Active Substance: BETIATIDE
     Indication: NUCLEAR MAGNETIC RESONANCE IMAGING
     Dosage: UNK
     Route: 065
     Dates: start: 20150312, end: 20150312

REACTIONS (3)
  - Syncope [Unknown]
  - Feeling jittery [Unknown]
  - Hypotension [Unknown]

NARRATIVE: CASE EVENT DATE: 20150312
